FAERS Safety Report 20227019 (Version 2)
Quarter: 2022Q3

REPORT INFORMATION
  Report Type: Report from Study
  Country: US (occurrence: US)
  Receive Date: 20211224
  Receipt Date: 20220808
  Transmission Date: 20221026
  Serious: No
  Sender: FDA-Public Use
  Company Number: US-GILEAD-2021-0562805

PATIENT
  Sex: Female

DRUGS (1)
  1. TENOFOVIR ALAFENAMIDE [Suspect]
     Active Substance: TENOFOVIR ALAFENAMIDE
     Indication: Chronic hepatitis C
     Dosage: 25 MG
     Route: 048

REACTIONS (2)
  - Headache [Unknown]
  - Prescription drug used without a prescription [Unknown]
